FAERS Safety Report 7375145-7 (Version None)
Quarter: 2011Q1

REPORT INFORMATION
  Report Type: 
  Country: None (occurrence: None)
  Receive Date: 20110325
  Receipt Date: 20110321
  Transmission Date: 20110831
  Serious: Yes (Death, Life-Threatening, Hospitalization)
  Sender: FDA-Public Use
  Company Number: FR-ROCHE-753974

PATIENT
  Sex: Male
  Weight: 58 kg

DRUGS (34)
  1. MYCOPHENOLATE MOFETIL [Suspect]
     Dosage: FREQUENCY: EVERYDAY. TEMPORARILY INTERRUPTED
     Route: 048
     Dates: start: 20110115, end: 20110209
  2. PREDNISONE [Suspect]
     Route: 048
     Dates: start: 20110116
  3. CYCLOSPORINE [Suspect]
     Dosage: DATE OF LAST DOSE PRIOR TO SAE: 16 MARCH 2011.
     Route: 048
     Dates: start: 20110222
  4. METHYLPREDNISOLONE [Suspect]
     Route: 042
     Dates: start: 20110115, end: 20110115
  5. BASILIXIMAB [Suspect]
     Route: 065
     Dates: start: 20110115, end: 20110115
  6. ECONAZOLE NITRATE [Concomitant]
     Dates: start: 20110131, end: 20110208
  7. POTASSIUM CHLORIDE [Concomitant]
     Dates: start: 20110308, end: 20110311
  8. CYCLOSPORINE [Suspect]
     Route: 048
     Dates: start: 20110209
  9. NEXIUM [Suspect]
     Route: 065
     Dates: start: 20110116, end: 20110201
  10. NORSET [Concomitant]
     Dates: start: 20110130, end: 20110204
  11. KARDEGIC [Concomitant]
     Dates: start: 20110303
  12. CLAMOXYL [Concomitant]
     Dates: start: 20110214, end: 20110306
  13. PREDNISONE [Suspect]
     Dosage: DATE OF LAST DOSE PRIOR TO SAE: 16 MARCH 2011.
     Route: 048
  14. ZANTAC [Suspect]
     Route: 065
     Dates: start: 20110202, end: 20110209
  15. EPREX [Concomitant]
     Dosage: TDD: 6000U
     Dates: start: 20110120
  16. INSULATARD [Concomitant]
     Dates: start: 20110127
  17. SODIUM BICARBONATE [Concomitant]
     Dates: start: 20110207
  18. POTASSIUM CHLORIDE [Concomitant]
     Dosage: DOSE: 440 MG/15ML/4DAY
     Dates: start: 20110209, end: 20110213
  19. MYCOPHENOLATE MOFETIL [Suspect]
     Dosage: PERMANENTLY DISCONTINUED. DATE OF LAST DOSE PRIOR TO SAE: 08 MARCH 2011.
     Route: 048
     Dates: start: 20110301, end: 20110308
  20. CERTICAN [Suspect]
     Route: 065
     Dates: start: 20110202, end: 20110209
  21. ADANCOR [Concomitant]
     Dates: start: 20110118
  22. CALCIDIA [Concomitant]
     Dates: start: 20110119
  23. CALCIDIA [Concomitant]
     Dates: start: 20110305, end: 20110313
  24. XATRAL [Concomitant]
     Dates: start: 20110302
  25. SULFAMETHOXAZOLE AND TRIMETHOPRIM [Suspect]
     Route: 065
     Dates: start: 20110124, end: 20110201
  26. ADANCOR [Concomitant]
     Dates: start: 20110209
  27. LASIX [Concomitant]
     Dates: start: 20110120, end: 20110207
  28. CYCLOSPORINE [Suspect]
     Route: 048
     Dates: start: 20110117, end: 20110201
  29. NITRODERM [Concomitant]
     Dates: start: 20110118
  30. AMLODIPINE BESYLATE [Concomitant]
     Dates: start: 20110120, end: 20110208
  31. ALUMINUM HYDROXIDE AND MAGNESIUM TRISILICATE [Concomitant]
     Dates: start: 20110209, end: 20110213
  32. VALGANCICLOVIR [Suspect]
     Dosage: TWICE A WEEK
     Route: 065
     Dates: start: 20110129, end: 20110201
  33. LASIX [Concomitant]
     Dates: start: 20110222, end: 20110306
  34. IMODIUM [Concomitant]
     Dates: start: 20110209, end: 20110213

REACTIONS (8)
  - ESCHERICHIA SEPSIS [None]
  - THROMBOCYTOPENIA [None]
  - ANASTOMOTIC HAEMORRHAGE [None]
  - GLOBULINS DECREASED [None]
  - COMPLICATIONS OF TRANSPLANTED KIDNEY [None]
  - DEATH [None]
  - IMPAIRED HEALING [None]
  - RENAL IMPAIRMENT [None]
